FAERS Safety Report 7259474-3 (Version None)
Quarter: 2011Q1

REPORT INFORMATION
  Report Type: 
  Country: None (occurrence: None)
  Receive Date: 20110129
  Receipt Date: 20100827
  Transmission Date: 20110831
  Serious: No
  Sender: FDA-Public Use
  Company Number: US-ABBOTT-10P-163-0666672-00

PATIENT
  Age: 44 Year
  Sex: Female

DRUGS (2)
  1. HUMIRA [Suspect]
     Indication: CROHN'S DISEASE
     Dosage: 40MG EOW BEGINNING 02 SEP 2010
     Dates: start: 20100811
  2. PENTASA [Concomitant]
     Indication: CROHN'S DISEASE
     Dosage: 6 TABLETS DAILY

REACTIONS (1)
  - URTICARIA [None]
